FAERS Safety Report 9521223 (Version 1)
Quarter: 2013Q3

REPORT INFORMATION
  Report Type: Spontaneous
  Country: PT (occurrence: None)
  Receive Date: 20130904
  Receipt Date: 20130904
  Transmission Date: 20140515
  Serious: Yes (Death)
  Sender: FDA-Public Use
  Company Number: 2013037752

PATIENT
  Age: 55 Year
  Sex: Male

DRUGS (1)
  1. INTRAVENOUS IMMUNOGLOBULIN [Suspect]
     Indication: HENOCH-SCHONLEIN PURPURA

REACTIONS (5)
  - Drug ineffective [None]
  - Off label use [None]
  - Gastrointestinal haemorrhage [None]
  - Haemorrhagic ascites [None]
  - Shock haemorrhagic [None]
